FAERS Safety Report 19661050 (Version 1)
Quarter: 2021Q3

REPORT INFORMATION
  Report Type: Spontaneous
  Country: US (occurrence: US)
  Receive Date: 20210805
  Receipt Date: 20210805
  Transmission Date: 20211014
  Serious: No
  Sender: FDA-Public Use
  Company Number: None

PATIENT
  Age: 52 Year
  Sex: Male
  Weight: 105.75 kg

DRUGS (1)
  1. CASIRIVIMAB AND IMDEVIMAB [Suspect]
     Active Substance: CASIRIVIMAB\IMDEVIMAB
     Indication: SARS-COV-2 TEST POSITIVE

REACTIONS (6)
  - Body temperature increased [None]
  - Syncope [None]
  - Anal incontinence [None]
  - Heart rate decreased [None]
  - Infusion related reaction [None]
  - Hyperhidrosis [None]

NARRATIVE: CASE EVENT DATE: 20210805
